FAERS Safety Report 9723091 (Version 2)
Quarter: 2014Q2

REPORT INFORMATION
  Report Type: Spontaneous
  Country: US (occurrence: US)
  Receive Date: 20131202
  Receipt Date: 20140617
  Transmission Date: 20141212
  Serious: Yes (Other)
  Sender: FDA-Public Use
  Company Number: US-BAYER-2013-144208

PATIENT
  Age: 74 Year
  Sex: Female
  Weight: 49.89 kg

DRUGS (8)
  1. BAYER ASPIRIN REGIMEN REGULAR 325 MG STRENGTH [Suspect]
     Indication: CEREBROVASCULAR ACCIDENT PROPHYLAXIS
     Dosage: 2 DF, BID
     Route: 048
     Dates: start: 2002
  2. TRIAMTERENE AND HYDROCHLOROTHIAZID [Concomitant]
     Indication: HYPERTENSION
     Dosage: UNK
  3. ACEBUTOLOL [Concomitant]
     Indication: HYPERTENSION
     Dosage: 200 MG, QD
  4. ZETIA [Concomitant]
     Indication: BLOOD CHOLESTEROL INCREASED
     Dosage: 10 MG, QD
  5. LIPITOR [Concomitant]
     Dosage: UNK
  6. CENTRUM SILVER [Concomitant]
     Dosage: DAILY
  7. VITAMIN C [Concomitant]
     Dosage: DAILY
  8. CALCIUM D [Concomitant]

REACTIONS (2)
  - Hearing impaired [Not Recovered/Not Resolved]
  - Off label use [None]
